FAERS Safety Report 8907805 (Version 1)
Quarter: 2012Q4

REPORT INFORMATION
  Report Type: 
  Country: US (occurrence: US)
  Receive Date: 20121113
  Receipt Date: 20121113
  Transmission Date: 20130627
  Serious: No
  Sender: FDA-Public Use
  Company Number: US-AMGEN-USASP2012010330

PATIENT
  Age: 58 Year
  Sex: Male

DRUGS (8)
  1. ENBREL [Suspect]
     Indication: PRODUCT USED FOR UNKNOWN INDICATION
     Dosage: 50 mg, qwk
     Route: 058
  2. METHOTREXATE [Concomitant]
     Dosage: 2.5 mg, UNK
  3. FOLIC ACID [Concomitant]
     Dosage: 1 mg, UNK
  4. VITAMIN C                          /00008001/ [Concomitant]
     Dosage: 250 mg, UNK
  5. POTASSIUM [Concomitant]
     Dosage: 75 mg, UNK
  6. VITAMIN D /00107901/ [Concomitant]
  7. LORTAB                             /00607101/ [Concomitant]
  8. FOLIC ACID [Concomitant]

REACTIONS (1)
  - Arthrodesis [Recovered/Resolved]
